FAERS Safety Report 5334819-X (Version None)
Quarter: 2007Q2

REPORT INFORMATION
  Report Type: 
  Country: None (occurrence: None)
  Receive Date: 20070525
  Receipt Date: 20070523
  Transmission Date: 20071010
  Serious: Yes (Hospitalization)
  Sender: FDA-Public Use
  Company Number: DE-ELI_LILLY_AND_COMPANY-DE200705005290

PATIENT
  Age: 59 Year
  Sex: Male

DRUGS (7)
  1. ALIMTA [Suspect]
     Indication: PLEURAL MESOTHELIOMA
     Dosage: 400 MG/M2, OTHER
     Route: 042
     Dates: start: 20060801
  2. CARBOPLATIN [Concomitant]
  3. FOLIC ACID [Concomitant]
  4. VITAMIN B-12 [Concomitant]
  5. DEXAMETHASONE [Concomitant]
  6. MARCUMAR [Concomitant]
  7. ANTI-DIABETICS [Concomitant]

REACTIONS (2)
  - ANAEMIA [None]
  - CONGESTIVE CARDIOMYOPATHY [None]
